FAERS Safety Report 9107666 (Version 3)
Quarter: 2013Q2

REPORT INFORMATION
  Report Type: Spontaneous
  Country: US (occurrence: US)
  Receive Date: 20130221
  Receipt Date: 20130612
  Transmission Date: 20140414
  Serious: No
  Sender: FDA-Public Use
  Company Number: US-009507513-1302USA008731

PATIENT
  Sex: Female

DRUGS (1)
  1. NEXPLANON [Suspect]
     Indication: CONTRACEPTION
     Dosage: UNK
     Route: 059

REACTIONS (4)
  - Haemorrhage [Unknown]
  - Affect lability [Unknown]
  - Device difficult to use [Recovered/Resolved with Sequelae]
  - Medical device complication [Recovered/Resolved with Sequelae]
